FAERS Safety Report 18893375 (Version 1)
Quarter: 2021Q1

REPORT INFORMATION
  Report Type: Spontaneous
  Country: IT (occurrence: IT)
  Receive Date: 20210215
  Receipt Date: 20210215
  Transmission Date: 20210420
  Serious: Yes (Other)
  Sender: FDA-Public Use
  Company Number: IT-MYLANLABS-2021M1008404

PATIENT
  Age: 30 Year
  Sex: Female

DRUGS (1)
  1. FROBEN [Suspect]
     Active Substance: FLURBIPROFEN
     Indication: DYSPNOEA
     Dosage: 1 VIAL
     Route: 065

REACTIONS (4)
  - Drug abuse [Unknown]
  - Incorrect route of product administration [Unknown]
  - Overdose [Unknown]
  - Drug dependence [Not Recovered/Not Resolved]
